FAERS Safety Report 11178077 (Version 2)
Quarter: 2015Q3

REPORT INFORMATION
  Report Type: Spontaneous
  Country: US (occurrence: US)
  Receive Date: 20150610
  Receipt Date: 20150713
  Transmission Date: 20151125
  Serious: No
  Sender: FDA-Public Use
  Company Number: US-B.I. PHARMACEUTICALS,INC./RIDGEFIELD-2015-BI-28597BP

PATIENT
  Age: 68 Year
  Sex: Male
  Weight: 93 kg

DRUGS (22)
  1. ALEVE [Concomitant]
     Active Substance: NAPROXEN SODIUM
     Indication: BACK PAIN
     Route: 065
  2. FISH OIL [Concomitant]
     Active Substance: FISH OIL
     Indication: BLOOD CHOLESTEROL
     Route: 065
  3. LORAZAPAM [Concomitant]
     Active Substance: LORAZEPAM
     Indication: PRODUCT USED FOR UNKNOWN INDICATION
     Route: 065
  4. ATROVENT [Concomitant]
     Active Substance: IPRATROPIUM BROMIDE
     Indication: DYSPNOEA
     Route: 065
  5. IPRATROPIUM [Concomitant]
     Active Substance: IPRATROPIUM
     Indication: NASAL CONGESTION
     Dosage: FORMULATION: INHALATION SPRAY
     Route: 055
  6. PROMETHAZINE [Concomitant]
     Active Substance: PROMETHAZINE\PROMETHAZINE HYDROCHLORIDE
     Indication: NASAL CONGESTION
     Route: 065
  7. CENTRUM [Concomitant]
     Active Substance: VITAMINS
     Indication: VITAMIN SUPPLEMENTATION
     Route: 065
  8. OMEPRAZOLE. [Concomitant]
     Active Substance: OMEPRAZOLE
     Indication: DYSPEPSIA
     Route: 065
  9. IRON [Concomitant]
     Active Substance: IRON
     Indication: IRON DEFICIENCY
     Route: 065
  10. COMBIVENT [Suspect]
     Active Substance: ALBUTEROL SULFATE\IPRATROPIUM BROMIDE
     Indication: DYSPNOEA
     Dosage: STRENGTH: 20 MCG / 100 MCG; DAILY DOSE: 80MCG/400MCG
     Route: 055
     Dates: start: 201504
  11. ALFUZOSIN [Concomitant]
     Active Substance: ALFUZOSIN
     Indication: URINARY TRACT DISORDER
     Route: 065
  12. TUMS [Concomitant]
     Active Substance: CALCIUM CARBONATE
     Indication: HYPERCHLORHYDRIA
     Route: 065
  13. LYRICA [Concomitant]
     Active Substance: PREGABALIN
     Indication: AMPUTATION STUMP PAIN
     Route: 065
  14. CYMBALTA [Concomitant]
     Active Substance: DULOXETINE HYDROCHLORIDE
     Indication: DEPRESSION
     Route: 065
  15. PRAVASTATIN [Concomitant]
     Active Substance: PRAVASTATIN\PRAVASTATIN SODIUM
     Indication: BLOOD CHOLESTEROL
     Route: 065
  16. FLONASE [Concomitant]
     Active Substance: FLUTICASONE PROPIONATE
     Indication: DYSPNOEA
     Route: 065
  17. OXYCONTIN [Concomitant]
     Active Substance: OXYCODONE HYDROCHLORIDE
     Indication: AMPUTATION STUMP PAIN
     Route: 065
  18. RANITIDINE [Concomitant]
     Active Substance: RANITIDINE\RANITIDINE HYDROCHLORIDE
     Indication: DYSPEPSIA
     Route: 048
  19. IPRATROPIUM BROMIDE. [Concomitant]
     Active Substance: IPRATROPIUM BROMIDE
     Indication: DYSPNOEA
     Dosage: 62.5 ML
     Route: 055
  20. LORATADINE. [Concomitant]
     Active Substance: LORATADINE
     Indication: NASAL CONGESTION
     Route: 065
  21. MELATONIN [Concomitant]
     Active Substance: MELATONIN
     Indication: INSOMNIA
     Route: 065
  22. PROAIR HFA [Concomitant]
     Active Substance: ALBUTEROL SULFATE
     Indication: DYSPNOEA
     Route: 065

REACTIONS (3)
  - Drug ineffective [Not Recovered/Not Resolved]
  - Product quality issue [Unknown]
  - Overdose [Not Recovered/Not Resolved]

NARRATIVE: CASE EVENT DATE: 201504
